FAERS Safety Report 7090086-0 (Version None)
Quarter: 2010Q4

REPORT INFORMATION
  Report Type: 
  Country: None (occurrence: None)
  Receive Date: 20101109
  Receipt Date: 20101025
  Transmission Date: 20110411
  Serious: Yes (Hospitalization)
  Sender: FDA-Public Use
  Company Number: US-RANBAXY-2010RR-39244

PATIENT
  Sex: Female

DRUGS (3)
  1. CIPROFLOXACIN [Suspect]
     Indication: ILL-DEFINED DISORDER
     Route: 065
  2. LEVAQUIN [Suspect]
     Indication: BRONCHITIS
     Dosage: 500 MG, QD
     Dates: start: 20050203, end: 20050209
  3. LEVAQUIN [Suspect]
     Dosage: 500 MG, QD
     Dates: start: 20070515, end: 20070528

REACTIONS (3)
  - PERIARTHRITIS [None]
  - ROTATOR CUFF SYNDROME [None]
  - TENDONITIS [None]
